FAERS Safety Report 6148831-4 (Version None)
Quarter: 2009Q2

REPORT INFORMATION
  Report Type: 
  Country: None (occurrence: None)
  Receive Date: 20090406
  Receipt Date: 20090325
  Transmission Date: 20091009
  Serious: Yes (Hospitalization)
  Sender: FDA-Public Use
  Company Number: 005531

PATIENT
  Age: 81 Year
  Sex: Male

DRUGS (5)
  1. PLETAL [Suspect]
     Indication: PERIPHERAL ARTERIAL OCCLUSIVE DISEASE
  2. LOSARTAN POTASSIUM [Concomitant]
  3. ACETYLSALICYLIC ACID SRT [Concomitant]
  4. ACETYLCYSTEINE [Concomitant]
  5. PENTOXIFYLLINE (PENTOXIFYLLLINE) [Concomitant]

REACTIONS (4)
  - CIRCULATORY COLLAPSE [None]
  - DIZZINESS [None]
  - HYPERTENSION [None]
  - LOSS OF CONSCIOUSNESS [None]
